FAERS Safety Report 6871264-X (Version None)
Quarter: 2010Q3

REPORT INFORMATION
  Report Type: 
  Country: None (occurrence: None)
  Receive Date: 20100723
  Receipt Date: 20100715
  Transmission Date: 20110219
  Serious: Yes (Other)
  Sender: FDA-Public Use
  Company Number: BR-ROCHE-710235

PATIENT
  Sex: Male
  Weight: 75 kg

DRUGS (2)
  1. ROACUTAN [Suspect]
     Indication: ACNE
     Route: 065
     Dates: start: 20021208, end: 20030901
  2. ROACUTAN [Suspect]
     Dosage: THERAPY: TWO CAPSULES OF 20 MG A DAY.
     Route: 065
     Dates: start: 20040101, end: 20050101

REACTIONS (7)
  - ACNE [None]
  - DEPRESSION [None]
  - LIP DRY [None]
  - RASH MACULAR [None]
  - SKIN ATROPHY [None]
  - SKIN DISORDER [None]
  - SUICIDE ATTEMPT [None]
